FAERS Safety Report 6969591-0 (Version None)
Quarter: 2010Q3

REPORT INFORMATION
  Report Type: 
  Country: None (occurrence: None)
  Receive Date: 20100903
  Receipt Date: 20100826
  Transmission Date: 20110219
  Serious: Yes (Hospitalization)
  Sender: FDA-Public Use
  Company Number: UTC-001376

PATIENT
  Age: 56 Year
  Sex: Male
  Weight: 98.9 kg

DRUGS (8)
  1. REMODULIN [Suspect]
     Indication: PULMONARY ARTERIAL HYPERTENSION
     Dosage: 80.64 UG/KG (0.056 UG/KG, 1 IN 1 MIN), INTRAVENOUS
     Route: 042
     Dates: start: 20080418
  2. LETAIRIS (AMBRISENTAN) [Concomitant]
  3. LASIX [Concomitant]
  4. COUMADIN [Concomitant]
  5. REVATIO [Concomitant]
  6. POTASSIUM CHLORIDE [Concomitant]
  7. CLONAZEPAM [Concomitant]
  8. DIGOXIN [Concomitant]

REACTIONS (3)
  - DEVICE RELATED INFECTION [None]
  - FALL [None]
  - PNEUMONIA [None]
